FAERS Safety Report 9513221 (Version 4)
Quarter: 2014Q1

REPORT INFORMATION
  Report Type: Spontaneous
  Country: JP (occurrence: JP)
  Receive Date: 20130910
  Receipt Date: 20140103
  Transmission Date: 20141002
  Serious: Yes (Hospitalization)
  Sender: FDA-Public Use
  Company Number: JP-UCBSA-096129

PATIENT
  Age: 63 Year
  Sex: Male
  Weight: 45.8 kg

DRUGS (9)
  1. E KEPPRA [Suspect]
     Indication: EPILEPSY
     Dosage: 250 MG TABLETS
     Route: 048
     Dates: start: 20130730, end: 20130806
  2. GABAPEN [Suspect]
     Indication: EPILEPSY
     Route: 048
     Dates: start: 20130803, end: 20130806
  3. SILECE [Suspect]
     Indication: INSOMNIA
     Route: 048
     Dates: start: 20130802, end: 20130806
  4. OLMETEC [Concomitant]
     Indication: HYPERTENSION
     Route: 048
     Dates: start: 20130731
  5. PLAVIX [Concomitant]
     Indication: CEREBROVASCULAR ACCIDENT PROPHYLAXIS
     Route: 048
     Dates: start: 20130731
  6. SEPAMIT [Concomitant]
     Indication: HYPERTENSION
     Route: 048
     Dates: start: 20130731
  7. DEPAKENE [Concomitant]
     Indication: EPILEPSY
     Route: 048
     Dates: start: 20130802, end: 20130803
  8. DEPAKENE [Concomitant]
     Indication: EPILEPSY
     Route: 048
     Dates: start: 201303, end: 20130801
  9. BROTIZOLAM [Concomitant]
     Route: 048

REACTIONS (1)
  - Drug-induced liver injury [Recovering/Resolving]
